FAERS Safety Report 8832287 (Version 1)
Quarter: 2012Q4

REPORT INFORMATION
  Report Type: 
  Country: US (occurrence: US)
  Receive Date: 20121009
  Receipt Date: 20121009
  Transmission Date: 20130627
  Serious: No
  Sender: FDA-Public Use
  Company Number: US-ASTRAZENECA-2012SE74371

PATIENT
  Age: 68 Year
  Sex: Female
  Weight: 77.6 kg

DRUGS (5)
  1. BRILINTA [Suspect]
     Indication: THROMBOSIS PROPHYLAXIS
     Route: 048
     Dates: start: 20120813, end: 20120914
  2. BRILINTA [Suspect]
     Indication: THROMBOSIS PROPHYLAXIS
     Route: 048
     Dates: start: 20120921
  3. ALL THE MEDICATION [Suspect]
     Route: 065
  4. ASA [Concomitant]
     Route: 048
     Dates: start: 2000
  5. LOPRESSOR [Concomitant]
     Indication: HYPERTENSION
     Route: 048
     Dates: start: 2000

REACTIONS (5)
  - Fatigue [Unknown]
  - Hyperventilation [Unknown]
  - Muscle spasms [Unknown]
  - Dyspnoea [Unknown]
  - Off label use [Unknown]
